FAERS Safety Report 7699379-7 (Version None)
Quarter: 2011Q3

REPORT INFORMATION
  Report Type: 
  Country: None (occurrence: None)
  Receive Date: 20110819
  Receipt Date: 20110809
  Transmission Date: 20111222
  Serious: Yes (Hospitalization, Other)
  Sender: FDA-Public Use
  Company Number: US-BAYER-2011-023730

PATIENT
  Age: 17 Year
  Sex: Female
  Weight: 96 kg

DRUGS (9)
  1. YAZ [Suspect]
     Indication: POLYCYSTIC OVARIES
     Dosage: UNK
     Dates: start: 20090201, end: 20100301
  2. IBUPROFEN [Concomitant]
     Dosage: UNK
     Route: 048
     Dates: start: 20100306
  3. BACTRIM DS [Concomitant]
     Dosage: UNK
     Route: 048
     Dates: start: 20100305
  4. TYLENOL W/ CODEINE NO. 3 [Concomitant]
     Dosage: UNK
  5. DROSPIRENONE AND ETHINYL ESTRADIOL [Suspect]
     Indication: POLYCYSTIC OVARIES
     Dosage: UNK
     Dates: start: 20090201, end: 20100301
  6. ACETAMINOPHEN W/ CODEINE [Concomitant]
     Dosage: UNK
     Dates: start: 20100306
  7. ZYRTEC [Concomitant]
     Dosage: UNK
     Dates: start: 20100305
  8. METFORMIN HYDROCHLORIDE [Concomitant]
     Dosage: DAILY DOSE 2000 MG
     Route: 048
     Dates: start: 20100225
  9. MOTRIN [Concomitant]
     Dosage: UNK
     Route: 048

REACTIONS (4)
  - PULMONARY EMBOLISM [None]
  - PAIN [None]
  - DEEP VEIN THROMBOSIS [None]
  - INJURY [None]
